FAERS Safety Report 9548944 (Version 5)
Quarter: 2014Q1

REPORT INFORMATION
  Report Type: Report from Study
  Country: LT (occurrence: LT)
  Receive Date: 20130924
  Receipt Date: 20140106
  Transmission Date: 20141002
  Serious: Yes (Hospitalization)
  Sender: FDA-Public Use
  Company Number: PHHO2013LT012301

PATIENT
  Age: 66 Year
  Sex: Female
  Weight: 83 kg

DRUGS (4)
  1. AMN107 [Suspect]
     Indication: CHRONIC MYELOID LEUKAEMIA
     Dosage: 300 MG, BID
     Route: 048
     Dates: start: 20101223
  2. AMN107 [Suspect]
     Dosage: 600 MG/DAY
     Route: 048
     Dates: start: 20130627, end: 20130922
  3. AMN107 [Suspect]
     Dosage: NO TREATMENT
     Dates: start: 20130923, end: 20131008
  4. AMN107 [Suspect]
     Dosage: 600 MG/DAY
     Route: 048
     Dates: start: 20131009, end: 20131103

REACTIONS (1)
  - Transient ischaemic attack [Recovered/Resolved]
